FAERS Safety Report 9261648 (Version 1)
Quarter: 2013Q2

REPORT INFORMATION
  Report Type: Spontaneous
  Country: US (occurrence: US)
  Receive Date: 20130429
  Receipt Date: 20130429
  Transmission Date: 20140414
  Serious: No
  Sender: FDA-Public Use
  Company Number: US-B.I. PHARMACEUTICALS,INC./RIDGEFIELD-2013-BI-11015PF

PATIENT
  Sex: Female

DRUGS (19)
  1. COMBIVENT [Suspect]
  2. DIABETA [Concomitant]
  3. CLARITIN [Concomitant]
  4. LYRICA [Concomitant]
  5. MACROBID [Concomitant]
  6. MICROZIDE [Concomitant]
  7. PYRIDIUM [Concomitant]
  8. ELAVIL [Concomitant]
  9. DRISDOL [Concomitant]
  10. NEURONTIN [Concomitant]
  11. COREG [Concomitant]
  12. TESSALON [Concomitant]
  13. XOPENEX HFA [Concomitant]
     Route: 055
  14. TRICOR [Concomitant]
  15. ZOCOR [Concomitant]
  16. PRINIVIL [Concomitant]
  17. OXYGEN-HELIUM INH [Concomitant]
  18. ECOTRIN [Concomitant]
  19. SPIRIVA [Concomitant]

REACTIONS (1)
  - Drug hypersensitivity [Unknown]
